FAERS Safety Report 9033104 (Version 1)
Quarter: 2013Q1

REPORT INFORMATION
  Report Type: Spontaneous
  Country: GB (occurrence: GB)
  Receive Date: 20130128
  Receipt Date: 20130128
  Transmission Date: 20140127
  Serious: Yes (Other)
  Sender: FDA-Public Use
  Company Number: GB-PFIZER INC-2013029329

PATIENT
  Sex: 0

DRUGS (2)
  1. SUTENT [Suspect]
     Dosage: UNK
  2. INLYTA [Suspect]
     Dosage: UNK

REACTIONS (1)
  - Demyelination [Unknown]
